FAERS Safety Report 4695383-1 (Version None)
Quarter: 2005Q2

REPORT INFORMATION
  Report Type: 
  Country: None (occurrence: None)
  Receive Date: 20050311
  Receipt Date: 20050311
  Transmission Date: 20051028
  Serious: No
  Sender: FDA-Public Use
  Company Number: None

PATIENT

DRUGS (1)
  1. TYLENOL W/ CODEINE [Suspect]
     Indication: BACK PAIN
     Dosage: ONE - TWO TID PRN

REACTIONS (1)
  - THERAPY NON-RESPONDER [None]
